FAERS Safety Report 8547844-2 (Version None)
Quarter: 2012Q3

REPORT INFORMATION
  Report Type: 
  Country: None (occurrence: None)
  Receive Date: 20120727
  Receipt Date: 20120716
  Transmission Date: 20120928
  Serious: No
  Sender: FDA-Public Use
  Company Number: US-ASTRAZENECA-2012SE26618

PATIENT
  Age: 68 Year
  Sex: Male
  Weight: 78.9 kg

DRUGS (2)
  1. NEXIUM [Suspect]
     Indication: GASTROOESOPHAGEAL REFLUX DISEASE
     Route: 048
     Dates: start: 20120302, end: 20120411
  2. RANITIDINE [Concomitant]

REACTIONS (3)
  - MUSCLE SPASMS [None]
  - ABDOMINAL PAIN [None]
  - GASTRIC DISORDER [None]
